FAERS Safety Report 5932061-2 (Version None)
Quarter: 2008Q4

REPORT INFORMATION
  Report Type: 
  Country: None (occurrence: None)
  Receive Date: 20081027
  Receipt Date: 20081020
  Transmission Date: 20090506
  Serious: Yes (Other)
  Sender: FDA-Public Use
  Company Number: US-AMGEN-KDL311464

PATIENT
  Sex: Female

DRUGS (1)
  1. ENBREL [Suspect]
     Indication: PSORIASIS
     Route: 058
     Dates: start: 20080311

REACTIONS (11)
  - ANXIETY [None]
  - CHEST DISCOMFORT [None]
  - DYSPNOEA [None]
  - EYE DISCHARGE [None]
  - HEADACHE [None]
  - INCREASED TENDENCY TO BRUISE [None]
  - NASAL CONGESTION [None]
  - NERVOUSNESS [None]
  - PARAESTHESIA [None]
  - RASH MACULAR [None]
  - VISUAL IMPAIRMENT [None]
